FAERS Safety Report 4512879-3 (Version None)
Quarter: 2004Q4

REPORT INFORMATION
  Report Type: 
  Country: None (occurrence: None)
  Receive Date: 20041118
  Receipt Date: 20041118
  Transmission Date: 20050328
  Serious: Yes (Other)
  Sender: FDA-Public Use
  Company Number: None

PATIENT
  Sex: Female
  Weight: 79.3795 kg

DRUGS (1)
  1. GABAPENTIN [Suspect]
     Indication: HERPES ZOSTER
     Dosage: ONE CAPSULE      3 TIMES PER DAY    ORAL
     Route: 048
     Dates: start: 20041115, end: 20041117

REACTIONS (5)
  - DRUG EFFECT DECREASED [None]
  - INADEQUATE ANALGESIA [None]
  - MIDDLE INSOMNIA [None]
  - NEURALGIA [None]
  - PHARMACEUTICAL PRODUCT COMPLAINT [None]
